FAERS Safety Report 5595619-9 (Version None)
Quarter: 2008Q1

REPORT INFORMATION
  Report Type: 
  Country: None (occurrence: None)
  Receive Date: 20080116
  Receipt Date: 20080116
  Transmission Date: 20080703
  Serious: Yes (Life-Threatening, Hospitalization)
  Sender: FDA-Public Use
  Company Number: None

PATIENT
  Age: 27 Year
  Sex: Male
  Weight: 81.1939 kg

DRUGS (1)
  1. CHANTIX [Suspect]
     Indication: SMOKING CESSATION THERAPY
     Dosage: 0.5MG SID PO;  1MG BID PO
     Route: 048
     Dates: start: 20071201, end: 20080101

REACTIONS (2)
  - IMPAIRED WORK ABILITY [None]
  - SUICIDAL IDEATION [None]
